FAERS Safety Report 8239435-8 (Version None)
Quarter: 2012Q1

REPORT INFORMATION
  Report Type: 
  Country: None (occurrence: None)
  Receive Date: 20120328
  Receipt Date: 20120323
  Transmission Date: 20120608
  Serious: Yes (Hospitalization, Other)
  Sender: FDA-Public Use
  Company Number: FI-AMGEN-FINSP2012016785

PATIENT
  Age: 46 Year
  Sex: Male
  Weight: 110 kg

DRUGS (6)
  1. PREDNISOLONE [Concomitant]
     Indication: IDIOPATHIC THROMBOCYTOPENIC PURPURA
     Dosage: 20 MG, UNK
     Route: 048
     Dates: start: 20090901
  2. NPLATE [Suspect]
     Indication: IDIOPATHIC THROMBOCYTOPENIC PURPURA
     Dosage: 2 UNK, QWK
     Route: 058
     Dates: start: 20120105, end: 20120320
  3. PRIVIGEN                           /00025201/ [Concomitant]
     Indication: IDIOPATHIC THROMBOCYTOPENIC PURPURA
     Dosage: 40 G, QD
     Route: 042
     Dates: start: 20120302, end: 20120304
  4. PANTOPRAZOLE [Concomitant]
     Dosage: 40 MG, QD
     Route: 048
  5. ENOXAPARIN SODIUM [Concomitant]
     Indication: THROMBOSIS PROPHYLAXIS
     Dosage: 20 MG, QD
     Dates: end: 20120228
  6. ALENDRONATE SODIUM [Concomitant]
     Dosage: 70 MG, QWK
     Route: 048

REACTIONS (4)
  - POST PROCEDURAL HAEMORRHAGE [None]
  - PULMONARY EMBOLISM [None]
  - THERAPEUTIC RESPONSE DECREASED [None]
  - ABDOMINAL INFECTION [None]
